FAERS Safety Report 25816283 (Version 1)
Quarter: 2025Q3

REPORT INFORMATION
  Report Type: Spontaneous
  Country: ID (occurrence: ID)
  Receive Date: 20250918
  Receipt Date: 20250918
  Transmission Date: 20251021
  Serious: Yes (Death, Other)
  Sender: STRIDES
  Company Number: ID-STRIDES ARCOLAB LIMITED-2025SP011784

PATIENT
  Age: 64 Year
  Sex: Female

DRUGS (12)
  1. WARFARIN [Suspect]
     Active Substance: WARFARIN
     Indication: Pericarditis
     Route: 048
  2. WARFARIN [Suspect]
     Active Substance: WARFARIN
     Indication: Pericardial effusion
  3. COLCHICINE [Suspect]
     Active Substance: COLCHICINE
     Indication: Pericarditis
     Route: 048
  4. COLCHICINE [Suspect]
     Active Substance: COLCHICINE
     Indication: Pericardial effusion
  5. FUROSEMIDE [Suspect]
     Active Substance: FUROSEMIDE
     Indication: Pericarditis
     Route: 048
  6. FUROSEMIDE [Suspect]
     Active Substance: FUROSEMIDE
     Indication: Pericardial effusion
  7. BISOPROLOL [Suspect]
     Active Substance: BISOPROLOL
     Indication: Pericarditis
     Route: 048
  8. BISOPROLOL [Suspect]
     Active Substance: BISOPROLOL
     Indication: Pericardial effusion
  9. RAMIPRIL [Suspect]
     Active Substance: RAMIPRIL
     Indication: Pericarditis
     Route: 048
  10. RAMIPRIL [Suspect]
     Active Substance: RAMIPRIL
     Indication: Pericardial effusion
  11. SODIUM CHLORIDE [Suspect]
     Active Substance: SODIUM CHLORIDE
     Indication: Pericarditis
     Route: 065
  12. SODIUM CHLORIDE [Suspect]
     Active Substance: SODIUM CHLORIDE
     Indication: Pericardial effusion

REACTIONS (2)
  - Cardiac arrest [Fatal]
  - Drug ineffective for unapproved indication [Fatal]
